FAERS Safety Report 8430047-X (Version None)
Quarter: 2012Q2

REPORT INFORMATION
  Report Type: 
  Country: None (occurrence: None)
  Receive Date: 20120612
  Receipt Date: 20120607
  Transmission Date: 20120825
  Serious: Yes (Other)
  Sender: FDA-Public Use
  Company Number: US-BAYER-2012-057623

PATIENT
  Age: 82 Year
  Sex: Female
  Weight: 61.224 kg

DRUGS (1)
  1. ALEVE (CAPLET) [Suspect]
     Dosage: 2 U, QD
     Route: 048

REACTIONS (1)
  - EPISTAXIS [None]
